FAERS Safety Report 10213338 (Version 1)
Quarter: 2014Q2

REPORT INFORMATION
  Report Type: Spontaneous
  Country: US (occurrence: None)
  Receive Date: 20140529
  Receipt Date: 20140529
  Transmission Date: 20141212
  Serious: Yes (Hospitalization)
  Sender: FDA-Public Use
  Company Number: UNT-2014-000817

PATIENT
  Age: 78 Year
  Sex: Male

DRUGS (2)
  1. TYVASO [Suspect]
     Indication: PULMONARY ARTERIAL HYPERTENSION
     Dosage: 12 BREATHS
     Route: 055
     Dates: start: 20120602
  2. TRACLEER (BOSENTAN) [Concomitant]

REACTIONS (1)
  - Swelling face [None]
